FAERS Safety Report 23571046 (Version 1)
Quarter: 2024Q1

REPORT INFORMATION
  Report Type: Spontaneous
  Country: US (occurrence: US)
  Receive Date: 20240227
  Receipt Date: 20240227
  Transmission Date: 20240410
  Serious: Yes (Life-Threatening, Hospitalization, Other)
  Sender: FDA-Public Use
  Company Number: US-SUN PHARMACEUTICAL INDUSTRIES LTD-2024R1-433518

PATIENT
  Age: 17 Year
  Sex: Male
  Weight: 180 kg

DRUGS (3)
  1. DEXAMETHASONE [Suspect]
     Active Substance: DEXAMETHASONE
     Indication: COVID-19
     Route: 065
  2. REMDESIVIR [Suspect]
     Active Substance: REMDESIVIR
     Indication: COVID-19
     Route: 065
  3. TOCILIZUMAB [Suspect]
     Active Substance: TOCILIZUMAB
     Indication: COVID-19
     Route: 065

REACTIONS (6)
  - Rhabdomyolysis [Unknown]
  - Acute kidney injury [Not Recovered/Not Resolved]
  - Blood creatinine increased [Recovering/Resolving]
  - Oliguria [Unknown]
  - Acute respiratory distress syndrome [Recovering/Resolving]
  - Pulmonary hypertensive crisis [Unknown]
